FAERS Safety Report 16233615 (Version 3)
Quarter: 2020Q2

REPORT INFORMATION
  Report Type: Report from Study
  Country: CA (occurrence: CA)
  Receive Date: 20190424
  Receipt Date: 20200629
  Transmission Date: 20200713
  Serious: Yes (Other)
  Sender: FDA-Public Use
  Company Number: CA-JNJFOC-20190341058

PATIENT
  Age: 4 Year
  Sex: Female
  Weight: 18 kg

DRUGS (2)
  1. REMICADE [Suspect]
     Active Substance: INFLIXIMAB
     Indication: COLITIS ULCERATIVE
     Dosage: LAST INFUSION ON 14 JUN-2020
     Route: 042
     Dates: start: 20190205
  2. REMICADE [Suspect]
     Active Substance: INFLIXIMAB
     Dosage: ON 14-JUN-2020, THE PATIENT RECEIVED 175 MILLIGRAMS, 19TH INFLIXIMAB INFUSION
     Route: 042
     Dates: start: 20200614

REACTIONS (4)
  - Off label use [Unknown]
  - General physical health deterioration [Unknown]
  - Colitis ulcerative [Recovering/Resolving]
  - Product use issue [Unknown]

NARRATIVE: CASE EVENT DATE: 20190205
